FAERS Safety Report 18799441 (Version 1)
Quarter: 2021Q1

REPORT INFORMATION
  Report Type: Spontaneous
  Country: JP (occurrence: JP)
  Receive Date: 20210128
  Receipt Date: 20210128
  Transmission Date: 20210419
  Serious: Yes (Hospitalization)
  Sender: FDA-Public Use
  Company Number: JP-BRISTOL-MYERS SQUIBB COMPANY-BMS-2020-111195

PATIENT

DRUGS (1)
  1. ORENCIA [Suspect]
     Active Substance: ABATACEPT
     Indication: PRODUCT USED FOR UNKNOWN INDICATION
     Dosage: UNAVAILABLE
     Route: 058

REACTIONS (5)
  - Fall [Unknown]
  - Device malfunction [Unknown]
  - Injection site haemorrhage [Unknown]
  - Fracture [Unknown]
  - Device leakage [Unknown]

NARRATIVE: CASE EVENT DATE: 20201225
